FAERS Safety Report 22935154 (Version 2)
Quarter: 2024Q1

REPORT INFORMATION
  Report Type: Spontaneous
  Country: US (occurrence: US)
  Receive Date: 20230912
  Receipt Date: 20240223
  Transmission Date: 20240410
  Serious: No
  Sender: FDA-Public Use
  Company Number: US-MYLANLABS-2023M1092488

PATIENT
  Age: 38 Year
  Sex: Male

DRUGS (2)
  1. SEMGLEE (INSULIN GLARGINE-YFGN) [Suspect]
     Active Substance: INSULIN GLARGINE-YFGN
     Indication: Type 2 diabetes mellitus
     Dosage: 30 INTERNATIONAL UNIT, QD
     Route: 058
  2. DEVICE [Suspect]
     Active Substance: DEVICE
     Indication: Type 2 diabetes mellitus

REACTIONS (3)
  - Product storage error [Unknown]
  - Device issue [Unknown]
  - Product container issue [Unknown]

NARRATIVE: CASE EVENT DATE: 20230830
